FAERS Safety Report 5585973-6 (Version None)
Quarter: 2007Q4

REPORT INFORMATION
  Report Type: 
  Country: None (occurrence: None)
  Receive Date: 20071205
  Receipt Date: 20070508
  Transmission Date: 20080405
  Serious: Yes (Hospitalization)
  Sender: FDA-Public Use
  Company Number: HQWYE102409MAY07

PATIENT
  Age: 42 Year
  Sex: Female
  Weight: 59.93 kg

DRUGS (6)
  1. EFFEXOR XR [Suspect]
     Indication: ANXIETY
     Dosage: 150 MG 1X PER 1 DAY, ORAL ; DOSE AND FREQUENCY UNSPECIFIED, ORAL
     Route: 048
     Dates: start: 20070501, end: 20070501
  2. EFFEXOR XR [Suspect]
     Indication: DEPRESSION
     Dosage: 150 MG 1X PER 1 DAY, ORAL ; DOSE AND FREQUENCY UNSPECIFIED, ORAL
     Route: 048
     Dates: start: 20070501, end: 20070501
  3. EFFEXOR XR [Suspect]
     Indication: ANXIETY
     Dosage: 150 MG 1X PER 1 DAY, ORAL ; DOSE AND FREQUENCY UNSPECIFIED, ORAL
     Route: 048
     Dates: end: 20070501
  4. EFFEXOR XR [Suspect]
     Indication: DEPRESSION
     Dosage: 150 MG 1X PER 1 DAY, ORAL ; DOSE AND FREQUENCY UNSPECIFIED, ORAL
     Route: 048
     Dates: end: 20070501
  5. ALCOHOL (ETHANOL, ) [Suspect]
     Dosage: ^8-10 SHOTS OF VODKA PER DAY^
  6. SOMA [Concomitant]

REACTIONS (5)
  - ANXIETY [None]
  - DEPRESSION [None]
  - DRUG WITHDRAWAL SYNDROME [None]
  - PANCREATITIS [None]
  - PARAESTHESIA [None]
